FAERS Safety Report 6597154-8 (Version None)
Quarter: 2010Q1

REPORT INFORMATION
  Report Type: 
  Country: None (occurrence: None)
  Receive Date: 20100223
  Receipt Date: 20100212
  Transmission Date: 20100710
  Serious: Yes (Hospitalization)
  Sender: FDA-Public Use
  Company Number: JP-ROCHE-679421

PATIENT
  Sex: Female

DRUGS (15)
  1. TOCILIZUMAB [Suspect]
     Indication: RHEUMATOID ARTHRITIS
     Route: 041
     Dates: start: 20090628, end: 20090728
  2. TOCILIZUMAB [Suspect]
     Route: 041
     Dates: start: 20090825, end: 20090825
  3. TOCILIZUMAB [Suspect]
     Route: 041
     Dates: start: 20090929, end: 20090929
  4. TOCILIZUMAB [Suspect]
     Route: 041
     Dates: start: 20091027, end: 20091027
  5. TOCILIZUMAB [Suspect]
     Route: 041
     Dates: start: 20091201, end: 20091201
  6. TOCILIZUMAB [Suspect]
     Dosage: NOTE: UNCERTAINTY.  REPORTED AS CONTINUED.
     Route: 041
     Dates: start: 20100209, end: 20100209
  7. METHOTREXATE [Concomitant]
     Route: 048
  8. PREDONINE [Concomitant]
     Route: 048
     Dates: end: 20090608
  9. PREDONINE [Concomitant]
     Route: 048
     Dates: start: 20090609, end: 20090727
  10. PREDONINE [Concomitant]
     Route: 048
     Dates: start: 20090728, end: 20090828
  11. PREDONINE [Concomitant]
     Route: 048
     Dates: start: 20090829
  12. INTEBAN [Concomitant]
     Dosage: DRUG REPORTED AS INTEBANI INDOMETACINI
     Route: 048
  13. THYRADIN S [Concomitant]
     Dosage: DRUG: THYRADIN STLEVOTHYROXITE SODIUML
     Route: 048
  14. NOVOLIN R [Concomitant]
     Dosage: DRUG: NOVOLIN RNINSULIN HUMAN I GENETICAL RECOMBINATIONGE
     Route: 058
  15. NOVOLIN N [Concomitant]
     Dosage: DRUG: NOVOLIN NNINSULIN HUMAN I GENETICAL RECOMBINATIONGE
     Route: 058

REACTIONS (1)
  - PYELONEPHRITIS [None]
